FAERS Safety Report 4467014-7 (Version None)
Quarter: 2004Q3

REPORT INFORMATION
  Report Type: 
  Country: None (occurrence: None)
  Receive Date: 20040928
  Receipt Date: 20040928
  Transmission Date: 20050211
  Serious: Yes (Hospitalization)
  Sender: FDA-Public Use
  Company Number: None

PATIENT
  Age: 75 Year
  Sex: Male
  Weight: 110.2241 kg

DRUGS (2)
  1. RITUXAN [Suspect]
     Indication: MANTLE CELL LYMPHOMA
     Dosage: 1000MG IVPB EVERY 14DAY
     Dates: start: 20040924
  2. RITUXAN [Suspect]

REACTIONS (7)
  - BLOOD PRESSURE INCREASED [None]
  - BODY TEMPERATURE INCREASED [None]
  - CHILLS [None]
  - DISORIENTATION [None]
  - HEART RATE INCREASED [None]
  - PNEUMONIA [None]
  - VOMITING [None]
